FAERS Safety Report 4673698-0 (Version None)
Quarter: 2005Q2

REPORT INFORMATION
  Report Type: 
  Country: None (occurrence: None)
  Receive Date: 20050523
  Receipt Date: 20050506
  Transmission Date: 20051028
  Serious: Yes (Death, Hospitalization)
  Sender: FDA-Public Use
  Company Number: 2005-BP-07790EX

PATIENT
  Age: 58 Year
  Sex: Male

DRUGS (13)
  1. PREDNISONE TAB [Suspect]
     Indication: PROSTATE CANCER METASTATIC
     Dosage: SEE IMAGE
     Route: 048
     Dates: start: 20050225, end: 20050404
  2. PREDNISONE TAB [Suspect]
     Indication: PROSTATE CANCER METASTATIC
     Dosage: SEE IMAGE
     Route: 048
     Dates: start: 20050405, end: 20050411
  3. MITOXANTRONE [Suspect]
     Indication: PROSTATE CANCER METASTATIC
     Dosage: 12 MG/M2 (27 MG) DAILY PER 21D  CYCLE , IV
     Route: 042
     Dates: start: 20050225, end: 20050318
  4. LORAZEPAM [Concomitant]
  5. WARFARIN SODIUM [Concomitant]
  6. FEXOFENADINE HCL [Concomitant]
  7. PSEUDOEPHEDRINE HCL [Concomitant]
  8. VALSARTAN [Concomitant]
  9. HYDROCHLOROTHIAZIDE [Concomitant]
  10. NIACIN (NICOTINIC ACID0 [Concomitant]
  11. PROCHLORPERAZINE MALEATE [Concomitant]
  12. SENAKOT- S (SENNA ALEXANDRINA) [Concomitant]
  13. OXYCODONE (OXYCODONE) [Concomitant]

REACTIONS (7)
  - ABDOMINAL MASS [None]
  - ASCITES [None]
  - DISEASE PROGRESSION [None]
  - GASTROINTESTINAL OEDEMA [None]
  - PERICARDIAL EFFUSION [None]
  - PLEURAL EFFUSION [None]
  - SCAN ABDOMEN ABNORMAL [None]
